FAERS Safety Report 7289004-1 (Version None)
Quarter: 2011Q1

REPORT INFORMATION
  Report Type: 
  Country: None (occurrence: None)
  Receive Date: 20110211
  Receipt Date: 20110201
  Transmission Date: 20110831
  Serious: Yes (Hospitalization)
  Sender: FDA-Public Use
  Company Number: PHHY2011IT08942

PATIENT
  Sex: Female

DRUGS (9)
  1. CLARITHROMYCIN [Suspect]
     Indication: INFLUENZA
     Dosage: 1000 MG, DAILY
     Route: 048
     Dates: start: 20100503, end: 20100509
  2. COUMADIN [Concomitant]
  3. MADOPAR [Concomitant]
  4. TOTALIP [Concomitant]
  5. TEGRETOL [Suspect]
     Dosage: 500 MG/DAY
     Route: 048
     Dates: end: 20100511
  6. LASIX [Concomitant]
  7. VALPRESSION [Concomitant]
  8. TEGRETOL [Suspect]
     Indication: EPILEPSY
     Dosage: 200 MG, UNK
     Route: 048
     Dates: start: 20100201
  9. RIVOTRIL [Concomitant]

REACTIONS (3)
  - DYSARTHRIA [None]
  - VOMITING [None]
  - CONFUSIONAL STATE [None]
